FAERS Safety Report 13280741 (Version 1)
Quarter: 2017Q1

REPORT INFORMATION
  Report Type: Spontaneous
  Country: FR (occurrence: FR)
  Receive Date: 20170301
  Receipt Date: 20170301
  Transmission Date: 20170428
  Serious: Yes (Hospitalization)
  Sender: FDA-Public Use
  Company Number: FR-ACCORD-048575

PATIENT
  Age: 47 Year
  Sex: Female

DRUGS (11)
  1. PHOSPHONEUROS [Concomitant]
     Active Substance: CALCIUM PHOSPHATE, DIBASIC, ANHYDROUS\MAGNESIUM GLYCEROPHOSPHATE\PHOSPHORIC ACID\SODIUM PHOSPHATE, DIBASIC
     Dosage: 300 DROPS ONCE DAILY
     Route: 048
  2. METHYLPREDNISOLONE. [Concomitant]
     Active Substance: METHYLPREDNISOLONE
  3. CISPLATINE MYLAN [Suspect]
     Active Substance: CISPLATIN
     Indication: LARYNGEAL SQUAMOUS CELL CARCINOMA
     Dosage: 25 MG/M2
     Route: 042
     Dates: start: 20170102, end: 20170105
  4. ONDANSETRON [Concomitant]
     Active Substance: ONDANSETRON
  5. ATARAX [Concomitant]
     Active Substance: HYDROXYZINE HYDROCHLORIDE
     Dosage: STRENGTH: 25 MG,??DIVISIBLE COATED TABLET
     Route: 048
     Dates: end: 20170107
  6. NICOTINE. [Concomitant]
     Active Substance: NICOTINE
     Dosage: NICOTINE PATCH
  7. PREDNISOLONE. [Concomitant]
     Active Substance: PREDNISOLONE
  8. EMEND [Concomitant]
     Active Substance: APREPITANT
  9. FLUOROURACILE ACCORD [Suspect]
     Active Substance: FLUOROURACIL
     Indication: LARYNGEAL SQUAMOUS CELL CARCINOMA
     Dosage: STRENGTH: 50 MG/ML,?1000 MG/M2
     Route: 042
     Dates: start: 20170102, end: 20170105
  10. SERESTA [Concomitant]
     Active Substance: OXAZEPAM
     Route: 048
  11. POTASSIUM GLUCONATE [Concomitant]
     Active Substance: POTASSIUM GLUCONATE
     Route: 048

REACTIONS (6)
  - Anaemia [Unknown]
  - Hyponatraemia [Unknown]
  - Amnesia [Unknown]
  - Leukocytosis [Unknown]
  - Loss of consciousness [Unknown]
  - Seizure [Recovered/Resolved]

NARRATIVE: CASE EVENT DATE: 20170107
